FAERS Safety Report 8235241-9 (Version None)
Quarter: 2012Q1

REPORT INFORMATION
  Report Type: 
  Country: None (occurrence: None)
  Receive Date: 20120326
  Receipt Date: 20120321
  Transmission Date: 20120608
  Serious: Yes (Hospitalization)
  Sender: FDA-Public Use
  Company Number: JP-PFIZER INC-2012073971

PATIENT
  Age: 65 Year
  Sex: Male

DRUGS (2)
  1. SPIRONOLACTONE [Suspect]
     Indication: ASCITES
     Dosage: UNK
  2. SPIRONOLACTONE [Suspect]
     Indication: PLEURAL EFFUSION

REACTIONS (3)
  - EMBOLIC STROKE [None]
  - HYPERKALAEMIA [None]
  - BRADYCARDIA [None]
